FAERS Safety Report 15547543 (Version 1)
Quarter: 2018Q4

REPORT INFORMATION
  Report Type: Spontaneous
  Country: US (occurrence: US)
  Receive Date: 20181024
  Receipt Date: 20181024
  Transmission Date: 20190205
  Serious: No
  Sender: FDA-Public Use
  Company Number: US-PERRIGO-18US003406

PATIENT
  Sex: Female

DRUGS (1)
  1. BUDESONIDE. [Suspect]
     Active Substance: BUDESONIDE
     Indication: PRODUCT USED FOR UNKNOWN INDICATION
     Dosage: 9 MG, QAM
     Route: 048

REACTIONS (6)
  - Skin haemorrhage [Unknown]
  - Fluid retention [Unknown]
  - Skin ulcer [Unknown]
  - Skin atrophy [Unknown]
  - Weight increased [Unknown]
  - Skin discolouration [Unknown]
